FAERS Safety Report 8875442 (Version 4)
Quarter: 2013Q3

REPORT INFORMATION
  Report Type: Spontaneous
  Country: US (occurrence: US)
  Receive Date: 20121029
  Receipt Date: 20130712
  Transmission Date: 20140515
  Serious: Yes (Hospitalization, Other)
  Sender: FDA-Public Use
  Company Number: US-009507513-1210USA009498

PATIENT
  Sex: Female

DRUGS (12)
  1. FOSAMAX [Suspect]
     Indication: OSTEOPOROSIS
     Dosage: 10 MG, UNK
     Route: 048
     Dates: start: 20001208, end: 20011210
  2. FOSAMAX [Suspect]
     Indication: PROPHYLAXIS
     Dosage: 70 MG, UNK
     Route: 048
     Dates: start: 20011211
  3. VITAMIN D (UNSPECIFIED) [Concomitant]
     Indication: OSTEOPOROSIS
  4. TOPROL XL TABLETS [Concomitant]
     Indication: ATRIAL FIBRILLATION
     Dosage: 50 MG, QD
     Dates: start: 19990826
  5. TOPROL XL TABLETS [Concomitant]
     Indication: HYPERTENSION
  6. ASPIRIN [Concomitant]
     Dosage: UNK
     Dates: start: 19990826
  7. IBUPROFEN [Concomitant]
     Indication: ARTHRITIS
  8. VIOXX [Concomitant]
     Indication: ARTHRITIS
  9. COUMADIN [Concomitant]
  10. ESTRATAB [Concomitant]
  11. PROMETRIUM [Concomitant]
     Dosage: 100 MG, QD
  12. HYDROCHLOROTHIAZIDE (+) TRIAMTERENE [Concomitant]
     Dosage: 75/50 MG, QD

REACTIONS (61)
  - Femur fracture [Recovered/Resolved]
  - Open reduction of fracture [Unknown]
  - Anaemia [Unknown]
  - Medical device removal [Unknown]
  - Bone graft [Unknown]
  - Knee arthroplasty [Unknown]
  - Vertebroplasty [Unknown]
  - Renal failure [Unknown]
  - Vena cava filter insertion [Unknown]
  - Pulmonary embolism [Unknown]
  - Renal failure chronic [Not Recovered/Not Resolved]
  - Anaemia [Unknown]
  - Myocardial infarction [Unknown]
  - Arteriosclerosis coronary artery [Unknown]
  - Cardiac failure congestive [Unknown]
  - Lumbar vertebral fracture [Unknown]
  - Hypertonic bladder [Unknown]
  - Lumbar spinal stenosis [Unknown]
  - Cardiac failure congestive [Unknown]
  - Spinal osteoarthritis [Unknown]
  - Gout [Unknown]
  - Vitamin D deficiency [Unknown]
  - Hyperparathyroidism [Unknown]
  - Hypokalaemia [Unknown]
  - Thrombosis [Unknown]
  - Increased tendency to bruise [Unknown]
  - Fall [Unknown]
  - Hypoxia [Unknown]
  - Deep vein thrombosis [Unknown]
  - Depression [Unknown]
  - Mitral valve incompetence [Unknown]
  - Left ventricular dysfunction [Unknown]
  - Left atrial dilatation [Unknown]
  - Cerebral atrophy [Unknown]
  - Cardiomegaly [Unknown]
  - Sinus disorder [Unknown]
  - Bursitis [Unknown]
  - Joint dislocation [Unknown]
  - Herpes zoster [Unknown]
  - Device breakage [Unknown]
  - Chronic obstructive pulmonary disease [Not Recovered/Not Resolved]
  - Anaemia of chronic disease [Not Recovered/Not Resolved]
  - Foot fracture [Recovering/Resolving]
  - Fall [Unknown]
  - Rib fracture [Unknown]
  - Sleep apnoea syndrome [Unknown]
  - Adverse event [Unknown]
  - Pain [Not Recovered/Not Resolved]
  - Thrombosis prophylaxis [Not Recovered/Not Resolved]
  - Heart rate irregular [Unknown]
  - Fungal infection [Unknown]
  - Hypercholesterolaemia [Unknown]
  - Ocular discomfort [Recovered/Resolved with Sequelae]
  - Blood triglycerides increased [Unknown]
  - Fungal skin infection [Unknown]
  - Vertebroplasty [Unknown]
  - Arthritis [Unknown]
  - Fall [Unknown]
  - Angiopathy [Unknown]
  - Osteopenia [Unknown]
  - Back pain [Not Recovered/Not Resolved]
